FAERS Safety Report 19678283 (Version 2)
Quarter: 2021Q3

REPORT INFORMATION
  Report Type: Spontaneous
  Country: IE (occurrence: IE)
  Receive Date: 20210809
  Receipt Date: 20210819
  Transmission Date: 20211014
  Serious: Yes (Life-Threatening, Hospitalization, Other)
  Sender: FDA-Public Use
  Company Number: IE-MYLANLABS-2021M1044561

PATIENT
  Age: 41 Year
  Sex: Male

DRUGS (7)
  1. CLOZAPINE. [Suspect]
     Active Substance: CLOZAPINE
     Indication: SCHIZOPHRENIA
     Dosage: 450 MILLIGRAM, BID
     Dates: start: 2002
  2. EPILIM [Suspect]
     Active Substance: VALPROATE SODIUM
     Indication: EPILEPSY
     Dosage: 1 GRAM, BID
  3. REAGILA [Suspect]
     Active Substance: CARIPRAZINE
     Indication: SCHIZOPHRENIA
     Dosage: 1.5 MILLIGRAM, TID
     Route: 048
     Dates: end: 20200330
  4. REAGILA [Suspect]
     Active Substance: CARIPRAZINE
     Dosage: 1.5 MILLIGRAM, QD
     Route: 048
     Dates: start: 20200303
  5. EPILIM [Suspect]
     Active Substance: VALPROATE SODIUM
     Indication: AFFECTIVE DISORDER
     Dosage: 1.2 GRAM, BID
  6. REAGILA [Suspect]
     Active Substance: CARIPRAZINE
     Dosage: 1.5 MILLIGRAM, BID
     Route: 048
     Dates: start: 20200310
  7. EPILIM [Suspect]
     Active Substance: VALPROATE SODIUM
     Dosage: 1.5 GRAM, BID

REACTIONS (4)
  - Somnolence [Unknown]
  - Seizure [Recovered/Resolved]
  - COVID-19 [Unknown]
  - Generalised tonic-clonic seizure [Recovered/Resolved]

NARRATIVE: CASE EVENT DATE: 20200329
